FAERS Safety Report 5811902-3 (Version None)
Quarter: 2008Q3

REPORT INFORMATION
  Report Type: 
  Country: None (occurrence: None)
  Receive Date: 20080716
  Receipt Date: 20080707
  Transmission Date: 20090109
  Serious: Yes (Other)
  Sender: FDA-Public Use
  Company Number: TH-TYCO HEALTHCARE/MALLINCKRODT-T200801128

PATIENT

DRUGS (1)
  1. SODIUM IODIDE I 131 [Suspect]

REACTIONS (4)
  - AUTOIMMUNE THYROIDITIS [None]
  - GOITRE [None]
  - HYPOTHYROIDISM [None]
  - THYROID CANCER [None]
